FAERS Safety Report 4764923-6 (Version None)
Quarter: 2005Q3

REPORT INFORMATION
  Report Type: 
  Country: None (occurrence: None)
  Receive Date: 20050906
  Receipt Date: 20050824
  Transmission Date: 20060218
  Serious: Yes (Hospitalization, Other)
  Sender: FDA-Public Use
  Company Number: HQWYE482815JUN05

PATIENT
  Age: 32 Year
  Sex: Male

DRUGS (8)
  1. RAPAMUNE [Suspect]
     Indication: PROPHYLAXIS AGAINST TRANSPLANT REJECTION
     Dosage: 2 MG ALTERNATING WITH 3 MG DAILY ORAL
     Route: 048
     Dates: start: 20040729
  2. LIPITOR [Concomitant]
  3. CLONIDINE [Concomitant]
  4. OMEPRAZOLE [Concomitant]
  5. AZATHIOPRINE [Concomitant]
  6. PREDNISONE [Concomitant]
  7. TRANDOLAPRIL (TRANDOLAPRIL) [Concomitant]
  8. WARFARIN SODIUM [Concomitant]

REACTIONS (3)
  - CHEST PAIN [None]
  - DEEP VEIN THROMBOSIS [None]
  - PULMONARY EMBOLISM [None]
